FAERS Safety Report 5665044-0 (Version None)
Quarter: 2008Q1

REPORT INFORMATION
  Report Type: 
  Country: None (occurrence: None)
  Receive Date: 20080314
  Receipt Date: 20080304
  Transmission Date: 20080703
  Serious: Yes (Hospitalization, Other)
  Sender: FDA-Public Use
  Company Number: GR-ABBOTT-08P-066-0440989-00

PATIENT
  Sex: Female
  Weight: 62 kg

DRUGS (3)
  1. HUMIRA [Suspect]
     Indication: RHEUMATOID ARTHRITIS
     Route: 058
     Dates: start: 20070306, end: 20080209
  2. TAB T4 150 [Concomitant]
     Indication: HYPOTHYROIDISM
     Route: 048
     Dates: start: 20030101
  3. TAB GYNOTARDYFERON [Concomitant]
     Indication: ANAEMIA
     Route: 048
     Dates: start: 20070101

REACTIONS (3)
  - ALOPECIA [None]
  - PNEUMONIA [None]
  - RELAPSING FEVER [None]
